FAERS Safety Report 17083333 (Version 1)
Quarter: 2019Q4

REPORT INFORMATION
  Report Type: Spontaneous
  Country: BO (occurrence: BO)
  Receive Date: 20191127
  Receipt Date: 20191127
  Transmission Date: 20200122
  Serious: Yes (Death)
  Sender: FDA-Public Use
  Company Number: NVSC2019BO047548

PATIENT
  Sex: Male

DRUGS (1)
  1. GLIVEC [Suspect]
     Active Substance: IMATINIB MESYLATE
     Indication: CHRONIC MYELOID LEUKAEMIA
     Dosage: 400 MG (4 TABLETS OF 100 MG TABLETS)
     Route: 065

REACTIONS (3)
  - Chronic myeloid leukaemia [Fatal]
  - Infection [Fatal]
  - Malignant neoplasm progression [Fatal]
